FAERS Safety Report 15402640 (Version 1)
Quarter: 2018Q4

REPORT INFORMATION
  Report Type: Spontaneous
  Country: BG (occurrence: BG)
  Receive Date: 20180919
  Receipt Date: 20180919
  Transmission Date: 20190204
  Serious: Yes (Life-Threatening)
  Sender: FDA-Public Use
  Company Number: BG-B. BRAUN MEDICAL INC.-2055107

PATIENT
  Age: 13 Month
  Sex: Male

DRUGS (1)
  1. DEXTROSE AND SODIUM CHLORIDE INJECTIONS USP 0264-7605-00 0264-7605-10 [Suspect]
     Active Substance: DEXTROSE\SODIUM CHLORIDE
     Dates: start: 20180826, end: 20180826

REACTIONS (1)
  - Bronchospasm [Recovered/Resolved]
